FAERS Safety Report 22593066 (Version 1)
Quarter: 2023Q2

REPORT INFORMATION
  Report Type: Report from Study
  Country: US (occurrence: US)
  Receive Date: 20230613
  Receipt Date: 20230613
  Transmission Date: 20230721
  Serious: Yes (Other)
  Sender: FDA-Public Use
  Company Number: US-002147023-NVSC2023US130535

PATIENT
  Sex: Female

DRUGS (1)
  1. LEQVIO [Suspect]
     Active Substance: INCLISIRAN SODIUM
     Indication: Product used for unknown indication
     Dosage: UNK
     Route: 058
     Dates: start: 202305

REACTIONS (5)
  - Eye haemorrhage [Unknown]
  - Diabetes mellitus [Unknown]
  - Visual impairment [Unknown]
  - Foot fracture [Unknown]
  - Cardiac disorder [Unknown]
